FAERS Safety Report 18068263 (Version 2)
Quarter: 2020Q3

REPORT INFORMATION
  Report Type: Report from Study
  Country: NL (occurrence: NL)
  Receive Date: 20200724
  Receipt Date: 20200805
  Transmission Date: 20201103
  Serious: Yes (Other)
  Sender: FDA-Public Use
  Company Number: NL-MYLANLABS-2020M1065714

PATIENT
  Age: 32 Year
  Sex: Female
  Weight: 66 kg

DRUGS (6)
  1. COLECALCIFEROL [Concomitant]
     Active Substance: CHOLECALCIFEROL
     Indication: VITAMIN D DEFICIENCY
     Dosage: UNK, 1X PER 2 WEEKS 1 AMPULE
     Route: 065
     Dates: start: 202005
  2. FLUTICASONE FUROATE [Concomitant]
     Active Substance: FLUTICASONE FUROATE
     Indication: SEASONAL ALLERGY
     Dosage: UNK, 1XPER DAY 1 INHALATION
     Route: 055
  3. TERBINAFINE. [Concomitant]
     Active Substance: TERBINAFINE
     Indication: ANTIFUNGAL TREATMENT
     Dosage: UNK, 1XPER DAY 1 TABLET
     Route: 048
     Dates: start: 202007, end: 20200726
  4. GLATIRAMEERACETAAT MYLAN 40 MG/ML [Suspect]
     Active Substance: GLATIRAMER ACETATE
     Indication: MULTIPLE SCLEROSIS
     Dosage: 40 MILLIGRAM, 3XW
     Route: 058
     Dates: start: 20190301, end: 2020
  5. ETHINYLESTRADIOL/LEVONORGESTREL [Concomitant]
     Active Substance: ETHINYL ESTRADIOL\LEVONORGESTREL
     Indication: CONTRACEPTION
     Dosage: UNK, 1XPER DAY 1 TABLET
     Route: 048
  6. CETOMACROGOL [Concomitant]
     Active Substance: COSMETICS
     Indication: DRY SKIN
     Dosage: UNK, BID
     Route: 065
     Dates: start: 2020

REACTIONS (2)
  - Multiple sclerosis [Unknown]
  - Drug effect less than expected [Not Recovered/Not Resolved]

NARRATIVE: CASE EVENT DATE: 2019
